FAERS Safety Report 7861234-7 (Version None)
Quarter: 2011Q4

REPORT INFORMATION
  Report Type: 
  Country: None (occurrence: None)
  Receive Date: 20111027
  Receipt Date: 20111020
  Transmission Date: 20120403
  Serious: Yes (Other)
  Sender: FDA-Public Use
  Company Number: US-JNJFOC-20111009270

PATIENT
  Age: 74 Year
  Sex: Female

DRUGS (3)
  1. TYLENOL-500 [Suspect]
     Indication: ARTHRALGIA
     Route: 048
  2. THYROID TAB [Concomitant]
     Indication: GOITRE
  3. TYLENOL-500 [Suspect]
     Route: 048

REACTIONS (2)
  - PRODUCT QUALITY ISSUE [None]
  - TRANSIENT ISCHAEMIC ATTACK [None]
